FAERS Safety Report 7843664-2 (Version None)
Quarter: 2011Q4

REPORT INFORMATION
  Report Type: 
  Country: None (occurrence: None)
  Receive Date: 20111025
  Receipt Date: 20111012
  Transmission Date: 20120403
  Serious: Yes (Death, Hospitalization)
  Sender: FDA-Public Use
  Company Number: AT-ACTELION-A-CH2011-52839

PATIENT
  Sex: Male

DRUGS (1)
  1. TRACLEER [Suspect]
     Indication: PULMONARY ARTERIAL HYPERTENSION
     Dosage: 62.5 MG, BID
     Route: 048
     Dates: start: 20110706, end: 20110801

REACTIONS (9)
  - RIGHT VENTRICULAR FAILURE [None]
  - CONCOMITANT DISEASE AGGRAVATED [None]
  - BLOOD CREATININE INCREASED [None]
  - GAMMA-GLUTAMYLTRANSFERASE INCREASED [None]
  - RENAL FAILURE CHRONIC [None]
  - BLOOD BILIRUBIN INCREASED [None]
  - RENAL FAILURE [None]
  - CARDIAC FAILURE [None]
  - BLOOD UREA INCREASED [None]
